FAERS Safety Report 9374258 (Version 1)
Quarter: 2013Q2

REPORT INFORMATION
  Report Type: Spontaneous
  Country: US (occurrence: None)
  Receive Date: 20130627
  Receipt Date: 20130627
  Transmission Date: 20140414
  Serious: Yes (Other)
  Sender: FDA-Public Use
  Company Number: None

PATIENT
  Age: 72 Year
  Sex: Male
  Weight: 68.04 kg

DRUGS (7)
  1. NIFEDICAL XL [Suspect]
     Indication: CARDIAC FAILURE
     Dosage: 30 MG ONCE DAILY PO
     Route: 048
  2. NIFEDICAL XL [Suspect]
     Indication: HYPERTENSION
     Dosage: 30 MG ONCE DAILY PO
     Route: 048
  3. CARVEDILOL [Concomitant]
  4. FUROSEMIDE [Concomitant]
  5. TAMSULOSIN [Concomitant]
  6. CLONIDINE [Concomitant]
  7. HYDROCHLOROTHIAZIDE [Concomitant]

REACTIONS (2)
  - Gynaecomastia [None]
  - Pain [None]
